FAERS Safety Report 23081663 (Version 2)
Quarter: 2024Q1

REPORT INFORMATION
  Report Type: Report from Study
  Country: IT (occurrence: IT)
  Receive Date: 20231019
  Receipt Date: 20240214
  Transmission Date: 20240410
  Serious: Yes (Life-Threatening, Hospitalization)
  Sender: FDA-Public Use
  Company Number: IT-JNJFOC-20230923058

PATIENT
  Age: 76 Year
  Sex: Female
  Weight: 60 kg

DRUGS (1)
  1. IBRUTINIB [Suspect]
     Active Substance: IBRUTINIB
     Indication: Waldenstrom^s macroglobulinaemia
     Route: 048
     Dates: start: 20220929, end: 20230802

REACTIONS (3)
  - Encephalitis [Unknown]
  - Pyrexia [Recovered/Resolved]
  - Sinusitis fungal [Unknown]

NARRATIVE: CASE EVENT DATE: 20230720
